FAERS Safety Report 14410486 (Version 1)
Quarter: 2018Q1

REPORT INFORMATION
  Report Type: Spontaneous
  Country: US (occurrence: US)
  Receive Date: 20180119
  Receipt Date: 20180119
  Transmission Date: 20180509
  Serious: No
  Sender: FDA-Public Use
  Company Number: US-PFIZER INC-2018021796

PATIENT
  Age: 59 Year
  Sex: Female

DRUGS (1)
  1. PREMARIN [Suspect]
     Active Substance: ESTROGENS, CONJUGATED
     Indication: DYSPAREUNIA
     Dosage: UNK

REACTIONS (8)
  - Disease progression [Unknown]
  - Discomfort [Unknown]
  - Feeling abnormal [Unknown]
  - Gastric disorder [Unknown]
  - Muscle spasms [Unknown]
  - Irritable bowel syndrome [Unknown]
  - Nausea [Unknown]
  - Weight increased [Unknown]
